FAERS Safety Report 25247265 (Version 1)
Quarter: 2025Q2

REPORT INFORMATION
  Report Type: Spontaneous
  Country: MX (occurrence: MX)
  Receive Date: 20250428
  Receipt Date: 20250428
  Transmission Date: 20250717
  Serious: Yes (Other)
  Sender: ELI LILLY AND COMPANY
  Company Number: MX-ELI_LILLY_AND_COMPANY-MX202504019931

PATIENT
  Age: 41 Year
  Sex: Female

DRUGS (1)
  1. VERZENIO [Suspect]
     Active Substance: ABEMACICLIB
     Indication: Breast cancer metastatic
     Dosage: 150 MG, BID
     Route: 065
     Dates: start: 20240112, end: 20250224

REACTIONS (2)
  - Hepatic failure [Unknown]
  - Neutropenia [Unknown]

NARRATIVE: CASE EVENT DATE: 20250201
